FAERS Safety Report 15346244 (Version 1)
Quarter: 2018Q3

REPORT INFORMATION
  Report Type: Spontaneous
  Country: US (occurrence: US)
  Receive Date: 20180904
  Receipt Date: 20180904
  Transmission Date: 20181010
  Serious: Yes (Hospitalization)
  Sender: FDA-Public Use
  Company Number: US-ASTRAZENECA-2018SF09740

PATIENT
  Sex: Female

DRUGS (2)
  1. METHADONE [Concomitant]
     Active Substance: METHADONE HYDROCHLORIDE
  2. MOVANTIK [Suspect]
     Active Substance: NALOXEGOL OXALATE
     Route: 048

REACTIONS (2)
  - Withdrawal syndrome [Unknown]
  - Extra dose administered [Unknown]
